FAERS Safety Report 25347107 (Version 2)
Quarter: 2025Q3

REPORT INFORMATION
  Report Type: Spontaneous
  Country: JP (occurrence: JP)
  Receive Date: 20250522
  Receipt Date: 20250812
  Transmission Date: 20251021
  Serious: Yes (Other)
  Sender: PFIZER
  Company Number: JP-PFIZER INC-PV202500009984

PATIENT
  Age: 51 Year
  Sex: Male

DRUGS (6)
  1. ELREXFIO [Suspect]
     Active Substance: ELRANATAMAB-BCMM
     Indication: Plasma cell myeloma recurrent
     Route: 058
     Dates: start: 20250107, end: 20250107
  2. ELREXFIO [Suspect]
     Active Substance: ELRANATAMAB-BCMM
     Route: 058
     Dates: start: 20250110, end: 20250110
  3. ELREXFIO [Suspect]
     Active Substance: ELRANATAMAB-BCMM
     Route: 058
     Dates: start: 20250114, end: 20250114
  4. ELREXFIO [Suspect]
     Active Substance: ELRANATAMAB-BCMM
     Route: 058
     Dates: start: 20250121, end: 20250121
  5. ELREXFIO [Suspect]
     Active Substance: ELRANATAMAB-BCMM
     Route: 058
     Dates: start: 20250128, end: 20250128
  6. ELREXFIO [Suspect]
     Active Substance: ELRANATAMAB-BCMM
     Route: 058
     Dates: start: 20250624

REACTIONS (10)
  - Infection [Unknown]
  - Pyrexia [Recovered/Resolved]
  - Cytokine release syndrome [Unknown]
  - Pruritus [Unknown]
  - Neutrophil count decreased [Recovered/Resolved]
  - Injection site pain [Recovered/Resolved]
  - Arthralgia [Unknown]
  - C-reactive protein increased [Unknown]
  - White blood cell count decreased [Recovered/Resolved]
  - Upper respiratory tract inflammation [Unknown]

NARRATIVE: CASE EVENT DATE: 20250108
